FAERS Safety Report 17261904 (Version 1)
Quarter: 2020Q1

REPORT INFORMATION
  Report Type: Spontaneous
  Country: CN (occurrence: CN)
  Receive Date: 20200113
  Receipt Date: 20200113
  Transmission Date: 20200409
  Serious: Yes (Other)
  Sender: FDA-Public Use
  Company Number: CN-PFIZER INC-2020011775

PATIENT
  Age: 29 Year
  Sex: Female

DRUGS (1)
  1. FRAGMIN [Suspect]
     Active Substance: DALTEPARIN SODIUM
     Indication: FAILED IN VITRO FERTILISATION
     Dosage: 5000 IU, 1X/DAY
     Route: 058
     Dates: start: 20200107, end: 20200108

REACTIONS (5)
  - Drug hypersensitivity [Recovering/Resolving]
  - Loss of consciousness [Recovering/Resolving]
  - Product use in unapproved indication [Unknown]
  - Off label use [Unknown]
  - Dizziness [Recovering/Resolving]

NARRATIVE: CASE EVENT DATE: 20200108
